FAERS Safety Report 5732846-1 (Version None)
Quarter: 2008Q2

REPORT INFORMATION
  Report Type: 
  Country: None (occurrence: None)
  Receive Date: 20080507
  Receipt Date: 20080507
  Transmission Date: 20081010
  Serious: Yes (Other)
  Sender: FDA-Public Use
  Company Number: None

PATIENT
  Sex: Male
  Weight: 114.3065 kg

DRUGS (1)
  1. STRATTERA [Suspect]
     Indication: ATTENTION DEFICIT/HYPERACTIVITY DISORDER
     Dosage: 25MG 1 TIME PER DAY
     Route: 048
     Dates: start: 20080430, end: 20080505

REACTIONS (24)
  - ABNORMAL BEHAVIOUR [None]
  - ANGER [None]
  - ASTHENIA [None]
  - BRUXISM [None]
  - CONSTIPATION [None]
  - CRYING [None]
  - DEPRESSED MOOD [None]
  - DIZZINESS [None]
  - DYSPNOEA [None]
  - EMOTIONAL DISORDER [None]
  - FEELING ABNORMAL [None]
  - FRUSTRATION [None]
  - HEADACHE [None]
  - HYPERHIDROSIS [None]
  - INFLUENZA [None]
  - INITIAL INSOMNIA [None]
  - LETHARGY [None]
  - MOOD ALTERED [None]
  - NAUSEA [None]
  - PALPITATIONS [None]
  - SEXUAL DYSFUNCTION [None]
  - TREMOR [None]
  - URINE FLOW DECREASED [None]
  - VOMITING [None]
